FAERS Safety Report 10495980 (Version 2)
Quarter: 2014Q4

REPORT INFORMATION
  Report Type: Spontaneous
  Country: JP (occurrence: JP)
  Receive Date: 20141003
  Receipt Date: 20141003
  Transmission Date: 20150528
  Serious: Yes (Other)
  Sender: FDA-Public Use
  Company Number: JP-ASTRAZENECA-2014SE71419

PATIENT
  Age: 64 Year
  Sex: Female

DRUGS (10)
  1. FENTANYL. [Concomitant]
     Active Substance: FENTANYL
     Indication: ANALGESIC THERAPY
     Dosage: FENTANYL 500 UG DROPERIDOL 2.5 MG 0.2% 290 ML: (580 MG)/ 4 ML/HR VIA PCA PUMP ALONG WITH ANAPEINE
     Route: 008
     Dates: start: 20140606, end: 20140606
  2. ANAPEINE [Suspect]
     Active Substance: ROPIVACAINE HYDROCHLORIDE
     Indication: ANALGESIC THERAPY
     Dosage: 15 MG THREE TIMES DAILY PLUS 3.75 MG (48.75 MG IN TOTAL)
     Route: 008
     Dates: start: 20140606, end: 20140606
  3. ANAPEINE [Suspect]
     Active Substance: ROPIVACAINE HYDROCHLORIDE
     Indication: EPIDURAL ANAESTHESIA
     Dosage: 26 MG,8 MG/H,VIA PCA PUMP/ FENTANYL 500 MCG AND DROPERIDOL 2.5 MG VIA PCA PUMP WAS STARTED AT 4ML/H
     Route: 008
     Dates: start: 20140606, end: 20140606
  4. ANAPEINE [Suspect]
     Active Substance: ROPIVACAINE HYDROCHLORIDE
     Indication: ANALGESIC THERAPY
     Dosage: 2 MG/ML, 32 MG, 8 MG/H, VIA PCA PUMP/VIA PCA PUMP AT 4ML/HR WAS RESUMED ON THE MORNING
     Route: 008
     Dates: start: 20140607, end: 20140607
  5. ANAPEINE [Suspect]
     Active Substance: ROPIVACAINE HYDROCHLORIDE
     Indication: EPIDURAL ANAESTHESIA
     Dosage: 2 MG/ML, 32 MG, 8 MG/H, VIA PCA PUMP/VIA PCA PUMP AT 4ML/HR WAS RESUMED ON THE MORNING
     Route: 008
     Dates: start: 20140607, end: 20140607
  6. FENTANYL. [Concomitant]
     Active Substance: FENTANYL
     Indication: EPIDURAL ANAESTHESIA
     Dosage: FENTANYL 500 UG DROPERIDOL 2.5 MG 0.2% 290 ML: (580 MG)/ 4 ML/HR VIA PCA PUMP ALONG WITH ANAPEINE
     Route: 008
     Dates: start: 20140606, end: 20140606
  7. DROPERIDOL. [Concomitant]
     Active Substance: DROPERIDOL
     Indication: EPIDURAL ANAESTHESIA
     Dosage: FENTANYL 500 UG DROPERIDOL 2.5 MG 0.2% 290 ML: (580 MG)/ 4 ML/HR VIA PCA PUMP WITH ANAPEINE
     Route: 008
     Dates: start: 20140606, end: 20140606
  8. ANAPEINE [Suspect]
     Active Substance: ROPIVACAINE HYDROCHLORIDE
     Indication: ANALGESIC THERAPY
     Dosage: 26 MG,8 MG/H,VIA PCA PUMP/ FENTANYL 500 MCG AND DROPERIDOL 2.5 MG VIA PCA PUMP WAS STARTED AT 4ML/H
     Route: 008
     Dates: start: 20140606, end: 20140606
  9. DROPERIDOL. [Concomitant]
     Active Substance: DROPERIDOL
     Indication: ANALGESIC THERAPY
     Dosage: FENTANYL 500 UG DROPERIDOL 2.5 MG 0.2% 290 ML: (580 MG)/ 4 ML/HR VIA PCA PUMP WITH ANAPEINE
     Route: 008
     Dates: start: 20140606, end: 20140606
  10. ANAPEINE [Suspect]
     Active Substance: ROPIVACAINE HYDROCHLORIDE
     Indication: EPIDURAL ANAESTHESIA
     Dosage: 15 MG THREE TIMES DAILY PLUS 3.75 MG (48.75 MG IN TOTAL)
     Route: 008
     Dates: start: 20140606, end: 20140606

REACTIONS (1)
  - Dyskinesia [Recovered/Resolved]

NARRATIVE: CASE EVENT DATE: 20140606
